FAERS Safety Report 15100373 (Version 1)
Quarter: 2018Q3

REPORT INFORMATION
  Report Type: Report from Study
  Country: IT (occurrence: IT)
  Receive Date: 20180703
  Receipt Date: 20180703
  Transmission Date: 20181010
  Serious: Yes (Other)
  Sender: FDA-Public Use
  Company Number: IT-TEVA-764958ACC

PATIENT
  Age: 47 Year
  Sex: Female

DRUGS (7)
  1. D?MANNOSIO [Concomitant]
     Indication: CYSTITIS
     Dosage: 1 CURIES DAILY;
  2. PELVILEN DUO ACT [Concomitant]
     Indication: PELVIC PAIN
     Dosage: 2 DOSAGE FORMS DAILY;
  3. LIPOSOM FORTE [Concomitant]
     Indication: NEUROLOGICAL EYELID DISORDER
     Dosage: TWO INJECTIONS AT WEEK
  4. TIMOGEL [Concomitant]
     Active Substance: TIMOLOL MALEATE
     Indication: OCULAR DISCOMFORT
     Dosage: 1 GTT DAILY;
  5. OMNIC [Concomitant]
     Active Substance: TAMSULOSIN HYDROCHLORIDE
     Dosage: 1 DOSAGE FORMS DAILY;
  6. COPAXONE [Suspect]
     Active Substance: GLATIRAMER ACETATE
     Indication: MULTIPLE SCLEROSIS
     Dates: start: 201609, end: 201709
  7. LYRICA [Concomitant]
     Active Substance: PREGABALIN
     Indication: MYALGIA
     Dosage: 150 MILLIGRAM DAILY;

REACTIONS (11)
  - Palpitations [Recovered/Resolved]
  - Generalised erythema [Recovered/Resolved]
  - Abdominal pain [Recovered/Resolved]
  - Injection site erythema [Recovered/Resolved]
  - Muscle disorder [Unknown]
  - Asthenia [Recovered/Resolved]
  - Swelling face [Recovered/Resolved]
  - Pharyngeal oedema [Recovered/Resolved]
  - Swelling [Recovered/Resolved]
  - Bladder pain [Recovered/Resolved]
  - Headache [Recovered/Resolved]

NARRATIVE: CASE EVENT DATE: 2017
